FAERS Safety Report 5473684-7 (Version None)
Quarter: 2007Q4

REPORT INFORMATION
  Report Type: 
  Country: None (occurrence: None)
  Receive Date: 20071001
  Receipt Date: 20070920
  Transmission Date: 20080405
  Serious: Yes (Death)
  Sender: FDA-Public Use
  Company Number: IN-BOEHRINGER INGELHEIM PHARMACEUTICALS, INC.-2007-DE-05637GD

PATIENT
  Age: 5 Year
  Sex: Male

DRUGS (4)
  1. NEVIRAPINE [Suspect]
     Indication: HIV INFECTION
  2. STAVUDINE [Suspect]
     Indication: HIV INFECTION
  3. LAMIVUDINE [Suspect]
     Indication: HIV INFECTION
  4. COTRIMOXAZOLE [Suspect]
     Indication: PROPHYLAXIS

REACTIONS (1)
  - HODGKIN'S DISEASE LYMPHOCYTE DEPLETION TYPE STAGE IV [None]
